FAERS Safety Report 13259099 (Version 1)
Quarter: 2017Q1

REPORT INFORMATION
  Report Type: Spontaneous
  Country: US (occurrence: US)
  Receive Date: 20170222
  Receipt Date: 20170222
  Transmission Date: 20170428
  Serious: Yes (Hospitalization, Other)
  Sender: FDA-Public Use
  Company Number: US-GLAXOSMITHKLINE-US2017GSK024854

PATIENT
  Sex: Female

DRUGS (25)
  1. PLAVIX [Suspect]
     Active Substance: CLOPIDOGREL BISULFATE
     Indication: CEREBROVASCULAR ACCIDENT PROPHYLAXIS
  2. KLONOPIN [Suspect]
     Active Substance: CLONAZEPAM
     Indication: INSOMNIA
  3. NEURONTIN [Suspect]
     Active Substance: GABAPENTIN
  4. ASPIRIN (BABY) [Suspect]
     Active Substance: ASPIRIN
  5. SYNTHROID [Suspect]
     Active Substance: LEVOTHYROXINE SODIUM
     Dosage: UNK
     Dates: start: 2015
  6. METHYLFOLATE [Suspect]
     Active Substance: LEVOMEFOLATE CALCIUM
  7. NIACIN. [Suspect]
     Active Substance: NIACIN
  8. PLAVIX [Suspect]
     Active Substance: CLOPIDOGREL BISULFATE
     Indication: CARDIOVASCULAR EVENT PROPHYLAXIS
     Dosage: 75 MG, QID
  9. FUROSEMIDE. [Suspect]
     Active Substance: FUROSEMIDE
  10. LIPITOR [Suspect]
     Active Substance: ATORVASTATIN CALCIUM
     Indication: BLOOD CHOLESTEROL INCREASED
     Dosage: 20 MG, QID
  11. CYMBALTA [Suspect]
     Active Substance: DULOXETINE HYDROCHLORIDE
     Indication: FIBROMYALGIA
  12. PRILOSEC [Suspect]
     Active Substance: OMEPRAZOLE MAGNESIUM
  13. NORVASC [Suspect]
     Active Substance: AMLODIPINE BESYLATE
     Indication: HYPERTENSION
     Dosage: UNK, QID
  14. CYMBALTA [Suspect]
     Active Substance: DULOXETINE HYDROCHLORIDE
     Indication: DEPRESSION
  15. LANTUS [Suspect]
     Active Substance: INSULIN GLARGINE
  16. METOPROLOL SUCCINATE ER [Suspect]
     Active Substance: METOPROLOL SUCCINATE
  17. PROGRAF [Suspect]
     Active Substance: TACROLIMUS\TACROLIMUS ANHYDROUS
     Dosage: UNK
     Dates: start: 1988
  18. FISH OIL [Suspect]
     Active Substance: FISH OIL
  19. NORCO [Suspect]
     Active Substance: ACETAMINOPHEN\HYDROCODONE BITARTRATE
     Dosage: UNK, PRN
  20. WELLBUTRIN XL [Suspect]
     Active Substance: BUPROPION HYDROCHLORIDE
     Indication: DEPRESSION
     Dosage: 300 MG, QID
  21. VALTREX [Suspect]
     Active Substance: VALACYCLOVIR HYDROCHLORIDE
  22. NOVOLOG [Suspect]
     Active Substance: INSULIN ASPART
     Dosage: UNK, PRN
  23. RAPAMUNE [Suspect]
     Active Substance: SIROLIMUS
     Indication: RENAL TRANSPLANT
     Dosage: 1 MG, QD
     Dates: start: 1988
  24. KLONOPIN [Suspect]
     Active Substance: CLONAZEPAM
     Indication: ANXIETY
  25. PREDNISONE. [Suspect]
     Active Substance: PREDNISONE

REACTIONS (18)
  - Diabetes mellitus [Not Recovered/Not Resolved]
  - Renal transplant [Recovered/Resolved]
  - Overdose [Unknown]
  - Coronary artery bypass [Recovered/Resolved]
  - Dehydration [Recovered/Resolved]
  - Myocardial infarction [Recovered/Resolved]
  - Lupus nephritis [Unknown]
  - Depression [Unknown]
  - Muscular weakness [Unknown]
  - Malnutrition [Recovered/Resolved]
  - Osteomyelitis [Recovered/Resolved]
  - Cellulitis [Recovered/Resolved]
  - Cholecystectomy [Recovered/Resolved]
  - Insomnia [Unknown]
  - Stent placement [Recovered/Resolved]
  - Systemic lupus erythematosus [Unknown]
  - Fatigue [Unknown]
  - Headache [Unknown]

NARRATIVE: CASE EVENT DATE: 1980
